FAERS Safety Report 6755511-0 (Version None)
Quarter: 2010Q2

REPORT INFORMATION
  Report Type: 
  Country: None (occurrence: None)
  Receive Date: 20100604
  Receipt Date: 20100525
  Transmission Date: 20101027
  Serious: Yes (Life-Threatening)
  Sender: FDA-Public Use
  Company Number: US-JNJFOC-20100510513

PATIENT
  Sex: Female
  Weight: 107.05 kg

DRUGS (3)
  1. REMICADE [Suspect]
     Indication: PSORIASIS
     Route: 042
  2. METHOTREXATE [Concomitant]
  3. CORTICOSTEROIDS [Concomitant]

REACTIONS (1)
  - HYPERTENSIVE EMERGENCY [None]
